FAERS Safety Report 5923433-0 (Version None)
Quarter: 2008Q4

REPORT INFORMATION
  Report Type: 
  Country: None (occurrence: None)
  Receive Date: 20081015
  Receipt Date: 20081002
  Transmission Date: 20090506
  Serious: Yes (Hospitalization)
  Sender: FDA-Public Use
  Company Number: WAES 0810USA00514

PATIENT
  Age: 61 Year
  Sex: Male
  Weight: 106.5953 kg

DRUGS (14)
  1. CAP VORINOSTAT 400 MG [Suspect]
     Indication: ACUTE MYELOID LEUKAEMIA
     Dosage: 400 MG/DAILY/PO
     Route: 048
     Dates: start: 20080714, end: 20080727
  2. CAP VORINOSTAT 400 MG [Suspect]
     Indication: ACUTE MYELOID LEUKAEMIA
     Dosage: 400 MG/DAILY/PO
     Route: 048
     Dates: start: 20080811, end: 20080824
  3. CAP VORINOSTAT 400 MG [Suspect]
     Indication: ACUTE MYELOID LEUKAEMIA
     Dosage: 400 MG/DAILY/PO
     Route: 048
     Dates: start: 20080908, end: 20080921
  4. CAP VORINOSTAT 400 MG [Suspect]
     Indication: ACUTE MYELOID LEUKAEMIA
     Dosage: 400 MG/DAILY/PO
     Route: 048
     Dates: start: 20080908, end: 20080921
  5. INFUSION (FORM) DECITABINE 46 MG [Suspect]
     Indication: ACUTE MYELOID LEUKAEMIA
     Dosage: 46 MG/DAILY/IV
     Route: 042
     Dates: start: 20080714, end: 20080718
  6. INFUSION (FORM) DECITABINE 46 MG [Suspect]
     Indication: ACUTE MYELOID LEUKAEMIA
     Dosage: 46 MG/DAILY/IV
     Route: 042
     Dates: start: 20080811, end: 20080815
  7. INFUSION (FORM) DECITABINE 46 MG [Suspect]
     Indication: ACUTE MYELOID LEUKAEMIA
     Dosage: 46 MG/DAILY/IV
     Route: 042
     Dates: start: 20080908, end: 20080912
  8. BIOTENE [Concomitant]
  9. VICODIN [Concomitant]
  10. ZOFRAN [Concomitant]
  11. ACETAMINOPHEN [Concomitant]
  12. ALLOPURINOL [Concomitant]
  13. BISACODYL [Concomitant]
  14. PANTOPRAZOLE SODIUM [Concomitant]

REACTIONS (3)
  - CONSTIPATION [None]
  - MALAISE [None]
  - PNEUMONIA FUNGAL [None]
